FAERS Safety Report 19171613 (Version 1)
Quarter: 2021Q2

REPORT INFORMATION
  Report Type: Spontaneous
  Country: ES (occurrence: ES)
  Receive Date: 20210423
  Receipt Date: 20210423
  Transmission Date: 20210717
  Serious: Yes (Death, Life-Threatening, Other)
  Sender: FDA-Public Use
  Company Number: ES-AMGEN-ESPSP2021060281

PATIENT

DRUGS (7)
  1. XGEVA [Suspect]
     Active Substance: DENOSUMAB
     Indication: METASTASES TO BONE
     Dosage: UNK
     Route: 065
  2. FULVESTRANT. [Concomitant]
     Active Substance: FULVESTRANT
  3. LETROZOLE. [Concomitant]
     Active Substance: LETROZOLE
  4. ANASTROZOLE. [Concomitant]
     Active Substance: ANASTROZOLE
  5. GOSERELIN [Concomitant]
     Active Substance: GOSERELIN
  6. EXEMESTANE. [Concomitant]
     Active Substance: EXEMESTANE
  7. PALBOCICLIB [Concomitant]
     Active Substance: PALBOCICLIB

REACTIONS (3)
  - Neutropenia [Unknown]
  - Breast cancer [Unknown]
  - Death [Fatal]
